FAERS Safety Report 9121585 (Version 2)
Quarter: 2013Q2

REPORT INFORMATION
  Report Type: Spontaneous
  Country: US (occurrence: US)
  Receive Date: 20130227
  Receipt Date: 20130412
  Transmission Date: 20140414
  Serious: Yes (Other)
  Sender: FDA-Public Use
  Company Number: US-BIOGENIDEC-2013BI019209

PATIENT
  Age: 55 Year
  Sex: Female
  Weight: 53 kg

DRUGS (12)
  1. AVONEX [Suspect]
     Indication: MULTIPLE SCLEROSIS
     Route: 030
     Dates: start: 2002
  2. AVONEX [Suspect]
     Indication: MULTIPLE SCLEROSIS
     Route: 030
     Dates: start: 20050219
  3. AVONEX [Suspect]
     Indication: MULTIPLE SCLEROSIS
     Route: 030
  4. SIMVASTATIN [Concomitant]
  5. PULMOCORT [Concomitant]
  6. FLEXHALER [Concomitant]
  7. VENILIN [Concomitant]
  8. BENAZEPRIL [Concomitant]
  9. OMEPROZAL [Concomitant]
  10. PROZAC [Concomitant]
  11. XANAX [Concomitant]
  12. ZYRTEC [Concomitant]

REACTIONS (3)
  - Hip surgery [Unknown]
  - Medical device removal [Unknown]
  - Abdominal operation [Unknown]
